FAERS Safety Report 9991113 (Version 1)
Quarter: 2014Q1

REPORT INFORMATION
  Report Type: Report from Study
  Country: US (occurrence: US)
  Receive Date: 20140310
  Receipt Date: 20140310
  Transmission Date: 20141002
  Serious: No
  Sender: FDA-Public Use
  Company Number: US-ABBVIE-13P-163-1135665-00

PATIENT
  Age: 57 Year
  Sex: Male

DRUGS (10)
  1. HUMIRA [Suspect]
     Indication: PSORIATIC ARTHROPATHY
     Dates: start: 20130808
  2. POTASSIUM CHLORIDE [Concomitant]
     Indication: HYPOKALAEMIA
  3. OXYCODONE HCL [Concomitant]
     Indication: PAIN
  4. MENS VITAMIN [Concomitant]
     Indication: VITAMIN SUPPLEMENTATION
  5. METOPROLOL [Concomitant]
     Indication: HYPERTENSION
  6. METHOTREXATE [Concomitant]
     Indication: PSORIATIC ARTHROPATHY
  7. HYDROCHLOROTHIAZIDE [Concomitant]
     Indication: FLUID RETENTION
  8. DILITIAZEM [Concomitant]
     Indication: HYPERTENSION
  9. CLOBETASOL [Concomitant]
     Indication: PSORIASIS
  10. BACLOFEN [Concomitant]
     Indication: MUSCLE SPASMS

REACTIONS (2)
  - Injection site pain [Recovered/Resolved]
  - Injection site erythema [Recovered/Resolved]
